FAERS Safety Report 21531238 (Version 1)
Quarter: 2022Q4

REPORT INFORMATION
  Report Type: Spontaneous
  Country: US (occurrence: None)
  Receive Date: 20221028
  Receipt Date: 20221028
  Transmission Date: 20230113
  Serious: No
  Sender: FDA-Public Use
  Company Number: None

PATIENT
  Age: 43 Year
  Sex: Male

DRUGS (1)
  1. DOXYCYCLINE HYCLATE [Suspect]
     Active Substance: DOXYCYCLINE HYCLATE
     Dates: start: 20221025, end: 20221025

REACTIONS (3)
  - Cough [None]
  - Nausea [None]
  - Anaphylactic reaction [None]

NARRATIVE: CASE EVENT DATE: 20221025
